FAERS Safety Report 19980247 (Version 2)
Quarter: 2021Q4

REPORT INFORMATION
  Report Type: Spontaneous
  Country: US (occurrence: US)
  Receive Date: 20211021
  Receipt Date: 20211214
  Transmission Date: 20220304
  Serious: Yes (Hospitalization)
  Sender: FDA-Public Use
  Company Number: US-GLENMARK PHARMACEUTICALS-2021GMK068482

PATIENT

DRUGS (3)
  1. RUFINAMIDE [Suspect]
     Active Substance: RUFINAMIDE
     Indication: Seizure
     Dosage: 4 DOSAGE FORM, BID AT 6 AM AND 6 PM
     Route: 048
     Dates: start: 202108
  2. CLOBAZAM [Concomitant]
     Active Substance: CLOBAZAM
     Indication: Seizure
     Dosage: 20 MILLIGRAM, AM
     Route: 048
     Dates: start: 202108
  3. CLOBAZAM [Concomitant]
     Active Substance: CLOBAZAM
     Dosage: 40 MILLIGRAM, HS
     Route: 048
     Dates: start: 202108

REACTIONS (3)
  - Fall [Unknown]
  - Contusion [Unknown]
  - Drug ineffective [Unknown]

NARRATIVE: CASE EVENT DATE: 20210901
